FAERS Safety Report 5983504-X (Version None)
Quarter: 2008Q4

REPORT INFORMATION
  Report Type: 
  Country: None (occurrence: None)
  Receive Date: 20081208
  Receipt Date: 20081127
  Transmission Date: 20090506
  Serious: Yes (Death)
  Sender: FDA-Public Use
  Company Number: CH-JNJFOC-20081200528

PATIENT
  Age: 52 Year
  Sex: Male

DRUGS (5)
  1. REMICADE [Suspect]
     Route: 042
  2. REMICADE [Suspect]
     Indication: CROHN'S DISEASE
     Dosage: 22 INFUSIONS ON UNKNOWN DATES.
     Route: 042
  3. METHYLPREDNISOLONE [Suspect]
     Indication: CROHN'S DISEASE
     Route: 042
  4. METHYLPREDNISOLONE [Suspect]
     Indication: PREMEDICATION
     Dosage: WITH EACH INFUSION
     Route: 042
  5. MERCAPTOPURINE ANHYDROUS [Suspect]
     Indication: CROHN'S DISEASE
     Route: 048

REACTIONS (1)
  - TONGUE CANCER METASTATIC [None]
